FAERS Safety Report 9840393 (Version 1)
Quarter: 2013Q4

REPORT INFORMATION
  Report Type: Spontaneous
  Country: US (occurrence: None)
  Receive Date: 20131211
  Receipt Date: 20131211
  Transmission Date: 20140711
  Serious: No
  Sender: FDA-Public Use
  Company Number: ALL1-2012-04089

PATIENT
  Age: 34 Year
  Sex: Female
  Weight: 52.2 kg

DRUGS (6)
  1. FIRAZYR [Suspect]
     Indication: HEREDITARY ANGIOEDEMA
     Dosage: 30 MG, AS REQ^D, SUBCUTANEOUS
     Route: 058
     Dates: start: 20111122
  2. BERINERT [Suspect]
     Indication: PRODUCT USED FOR UNKNOWN INDICATION
  3. ZANTAC (RANITDINE HYDROCHLORIDE) [Concomitant]
  4. NEXIUM  /01479302/ (ESOMEPRAZOLE MAGNESIUM) [Concomitant]
  5. ZYRTEC (CETIRIZINE HYDROCHLORIDE) [Concomitant]
  6. ALBUTEROL  /00139501/ (SALBUTAMOL) [Concomitant]

REACTIONS (2)
  - Feeling abnormal [None]
  - Fatigue [None]
